FAERS Safety Report 7872020-6 (Version None)
Quarter: 2011Q4

REPORT INFORMATION
  Report Type: 
  Country: None (occurrence: None)
  Receive Date: 20111029
  Receipt Date: 20110314
  Transmission Date: 20120403
  Serious: No
  Sender: FDA-Public Use
  Company Number: US-AMGEN-USASP2011013911

PATIENT
  Age: 56 Year
  Sex: Female
  Weight: 81.633 kg

DRUGS (5)
  1. FISH OIL [Concomitant]
  2. LISINOPRIL AND HYDROCHLOROTHIAZIDE [Concomitant]
  3. MELOXICAM [Concomitant]
     Dosage: 7.5 MG, UNK
  4. VITAMIN D [Concomitant]
     Dosage: 1000 IU, UNK
  5. ENBREL [Suspect]
     Indication: PRODUCT USED FOR UNKNOWN INDICATION
     Dosage: 50 MG, QWK
     Route: 058

REACTIONS (1)
  - PSORIASIS [None]
